FAERS Safety Report 25461505 (Version 1)
Quarter: 2025Q2

REPORT INFORMATION
  Report Type: Spontaneous
  Country: US (occurrence: US)
  Receive Date: 20250620
  Receipt Date: 20250620
  Transmission Date: 20250717
  Serious: Yes (Life-Threatening, Hospitalization, Other)
  Sender: SEPTODONT
  Company Number: None

PATIENT
  Age: 57 Year
  Sex: Male
  Weight: 122 kg

DRUGS (1)
  1. LIDOCAINE HYDROCHLORIDE [Suspect]
     Active Substance: LIDOCAINE HYDROCHLORIDE
     Indication: Anaesthesia
     Route: 065
     Dates: start: 20241007, end: 20241007

REACTIONS (3)
  - Bradycardia [Unknown]
  - Cardiac arrest [Unknown]
  - Hypotension [Unknown]

NARRATIVE: CASE EVENT DATE: 20241007
